FAERS Safety Report 6916016-7 (Version None)
Quarter: 2010Q3

REPORT INFORMATION
  Report Type: 
  Country: None (occurrence: None)
  Receive Date: 20100810
  Receipt Date: 20100803
  Transmission Date: 20110219
  Serious: Yes (Hospitalization)
  Sender: FDA-Public Use
  Company Number: US-BIOGENIDEC-2009BI027338

PATIENT
  Age: 60 Year
  Sex: Female
  Weight: 79 kg

DRUGS (2)
  1. TYSABRI [Suspect]
     Indication: MULTIPLE SCLEROSIS
     Route: 042
     Dates: start: 20071017, end: 20090624
  2. TYSABRI [Suspect]
     Route: 042
     Dates: start: 20100205

REACTIONS (11)
  - CATHETER SITE INFECTION [None]
  - CENTRAL VENOUS CATHETER REMOVAL [None]
  - COMA [None]
  - CONTUSION [None]
  - FALL [None]
  - MALAISE [None]
  - NECK PAIN [None]
  - PYREXIA [None]
  - STAPHYLOCOCCAL INFECTION [None]
  - STAPHYLOCOCCAL SEPSIS [None]
  - VISION BLURRED [None]
